FAERS Safety Report 10874642 (Version 1)
Quarter: 2015Q1

REPORT INFORMATION
  Report Type: Spontaneous
  Country: JP (occurrence: JP)
  Receive Date: 20150227
  Receipt Date: 20150227
  Transmission Date: 20150721
  Serious: Yes (Other)
  Sender: FDA-Public Use
  Company Number: JP-MYLANLABS-2015M1005097

PATIENT

DRUGS (3)
  1. PREDNISOLONE TABLETS 1^HOEI^ [Suspect]
     Active Substance: PREDNISOLONE
     Indication: ANTI-NEUTROPHIL CYTOPLASMIC ANTIBODY POSITIVE VASCULITIS
  2. PROTON PUMP INHIBITORS [Concomitant]
     Active Substance: UNSPECIFIED INGREDIENT
     Indication: PROPHYLAXIS AGAINST GASTROINTESTINAL ULCER
     Dosage: UNK
     Route: 065
  3. PREDNISOLONE TABLETS 1^HOEI^ [Suspect]
     Active Substance: PREDNISOLONE
     Indication: OTITIS MEDIA
     Dosage: UNK
     Route: 065

REACTIONS (3)
  - Diabetes mellitus [Recovering/Resolving]
  - Hypercholesterolaemia [Recovering/Resolving]
  - Cushingoid [Unknown]
